FAERS Safety Report 8927846 (Version 1)
Quarter: 2012Q4

REPORT INFORMATION
  Report Type: 
  Country: US (occurrence: US)
  Receive Date: 20121127
  Receipt Date: 20121127
  Transmission Date: 20130627
  Serious: Yes (Other)
  Sender: FDA-Public Use
  Company Number: US-MYLANLABS-2012S1019271

PATIENT
  Age: 3 Year
  Sex: Male

DRUGS (2)
  1. MONTELUKAST SODIUM [Suspect]
     Indication: ASTHMA
     Route: 048
     Dates: start: 20120907, end: 20120909
  2. ALBUTEROL [Concomitant]
     Indication: ASTHMA
     Dates: start: 2010

REACTIONS (8)
  - Hypersensitivity [Recovered/Resolved]
  - Pyrexia [Recovered/Resolved]
  - Cough [Recovered/Resolved]
  - Rhinorrhoea [Recovered/Resolved]
  - Diarrhoea [Recovered/Resolved]
  - Eczema [Not Recovered/Not Resolved]
  - Urticaria [Not Recovered/Not Resolved]
  - Throat tightness [Not Recovered/Not Resolved]
